FAERS Safety Report 4777282-X (Version None)
Quarter: 2005Q3

REPORT INFORMATION
  Report Type: 
  Country: None (occurrence: None)
  Receive Date: 20050915
  Receipt Date: 20050907
  Transmission Date: 20060218
  Serious: Yes (Disabling)
  Sender: FDA-Public Use
  Company Number: HQWYE336109SEP05

PATIENT
  Sex: Male

DRUGS (3)
  1. EFFEXOR XR [Suspect]
     Dosage: SEE IMAGE
     Dates: start: 20030101, end: 20030101
  2. EFFEXOR XR [Suspect]
     Dosage: SEE IMAGE
     Dates: end: 20030101
  3. EFFEXOR XR [Suspect]
     Dosage: SEE IMAGE
     Dates: start: 20030101

REACTIONS (10)
  - APATHY [None]
  - BLOOD PRESSURE INCREASED [None]
  - DRUG DEPENDENCE [None]
  - DRUG WITHDRAWAL SYNDROME [None]
  - LETHARGY [None]
  - PENILE SIZE REDUCED [None]
  - SYNCOPE [None]
  - THINKING ABNORMAL [None]
  - WEIGHT INCREASED [None]
  - WRONG TECHNIQUE IN DRUG USAGE PROCESS [None]
